FAERS Safety Report 11574845 (Version 2)
Quarter: 2015Q4

REPORT INFORMATION
  Report Type: Spontaneous
  Country: US (occurrence: US)
  Receive Date: 20150930
  Receipt Date: 20151020
  Transmission Date: 20160304
  Serious: No
  Sender: FDA-Public Use
  Company Number: US-PFIZER INC-2015295744

PATIENT
  Sex: Female

DRUGS (1)
  1. NIFEDIPINE. [Suspect]
     Active Substance: NIFEDIPINE
     Dosage: 10 MG, UNK

REACTIONS (2)
  - Burning sensation [Recovered/Resolved]
  - Petechiae [Recovering/Resolving]
